FAERS Safety Report 16708231 (Version 2)
Quarter: 2019Q4

REPORT INFORMATION
  Report Type: Report from Study
  Country: None (occurrence: CA)
  Receive Date: 20190816
  Receipt Date: 20191212
  Transmission Date: 20200122
  Serious: Yes (Other)
  Sender: FDA-Public Use
  Company Number: CA-ABBVIE-19K-028-2887153-00

PATIENT
  Age: 80 Year
  Sex: Male

DRUGS (1)
  1. HUMIRA [Suspect]
     Active Substance: ADALIMUMAB
     Indication: RHEUMATOID ARTHRITIS
     Route: 058
     Dates: start: 20190505

REACTIONS (8)
  - Transient ischaemic attack [Unknown]
  - Injury [Not Recovered/Not Resolved]
  - Migraine [Unknown]
  - Injection site bruising [Not Recovered/Not Resolved]
  - Coagulopathy [Not Recovered/Not Resolved]
  - Disorientation [Unknown]
  - Neck pain [Not Recovered/Not Resolved]
  - Confusional state [Unknown]

NARRATIVE: CASE EVENT DATE: 2019
